FAERS Safety Report 16173038 (Version 1)
Quarter: 2019Q2

REPORT INFORMATION
  Report Type: Spontaneous
  Country: US (occurrence: US)
  Receive Date: 20190305
  Receipt Date: 20190305
  Transmission Date: 20190711
  Serious: Yes (Other)
  Sender: FDA-Public Use
  Company Number: None

PATIENT
  Age: 14 Year
  Sex: Female
  Weight: 65.77 kg

DRUGS (6)
  1. C [Concomitant]
  2. PROBIOTIC [Concomitant]
     Active Substance: PROBIOTICS NOS
  3. KETOCONAZOLE SHAMPOO 2% [Suspect]
     Active Substance: KETOCONAZOLE
     Indication: DANDRUFF
     Route: 061
     Dates: start: 20181001, end: 20181101
  4. RET A [Concomitant]
  5. BIOTIN [Concomitant]
     Active Substance: BIOTIN
  6. KETOCONAZOLE CREAM 2% [Suspect]
     Active Substance: KETOCONAZOLE
     Indication: ECZEMA
     Dosage: ?          OTHER STRENGTH:2%;?
     Route: 061
     Dates: start: 20181001, end: 20181101

REACTIONS (1)
  - Alopecia [None]

NARRATIVE: CASE EVENT DATE: 20181001
